FAERS Safety Report 23218451 (Version 4)
Quarter: 2023Q4

REPORT INFORMATION
  Report Type: Spontaneous
  Country: FR (occurrence: FR)
  Receive Date: 20231122
  Receipt Date: 20231229
  Transmission Date: 20240110
  Serious: Yes (Other)
  Sender: FDA-Public Use
  Company Number: FR-OTSUKA-2023_023754

PATIENT
  Age: 16 Year
  Sex: Male

DRUGS (5)
  1. ABILIFY MAINTENA [Suspect]
     Active Substance: ARIPIPRAZOLE
     Indication: Bipolar I disorder
     Dosage: 400 MG, DURING 1 AND A HALF / 2 MONTHS
     Route: 065
     Dates: start: 20230421, end: 20231110
  2. ABILIFY [Suspect]
     Active Substance: ARIPIPRAZOLE
     Indication: Bipolar I disorder
     Dosage: 30 MG
     Route: 048
     Dates: start: 2020
  3. ABILIFY [Suspect]
     Active Substance: ARIPIPRAZOLE
     Dosage: 20 MG
     Route: 048
     Dates: start: 2020
  4. ABILIFY [Suspect]
     Active Substance: ARIPIPRAZOLE
     Dosage: 15 MG
     Route: 065
     Dates: start: 2020
  5. OLANZAPINE [Concomitant]
     Active Substance: OLANZAPINE
     Indication: Product used for unknown indication
     Dosage: 10 MG
     Route: 065

REACTIONS (14)
  - Psychotic symptom [Not Recovered/Not Resolved]
  - Depressed level of consciousness [Unknown]
  - Affective disorder [Not Recovered/Not Resolved]
  - Psychogenic seizure [Unknown]
  - Tongue biting [Unknown]
  - Malaise [Unknown]
  - Movement disorder [Unknown]
  - Gait disturbance [Unknown]
  - Asthenia [Unknown]
  - Product use issue [Unknown]
  - Inappropriate schedule of product administration [Unknown]
  - Drug ineffective [Unknown]
  - Treatment noncompliance [Unknown]
  - Drug monitoring procedure incorrectly performed [Unknown]

NARRATIVE: CASE EVENT DATE: 20230608
